FAERS Safety Report 10555389 (Version 4)
Quarter: 2015Q2

REPORT INFORMATION
  Report Type: Spontaneous
  Country: US (occurrence: US)
  Receive Date: 20141030
  Receipt Date: 20150505
  Transmission Date: 20150821
  Serious: Yes (Hospitalization, Other)
  Sender: FDA-Public Use
  Company Number: US-BAYER-2014-159302

PATIENT
  Age: 36 Year
  Sex: Female
  Weight: 58.96 kg

DRUGS (5)
  1. EFFEXOR [Concomitant]
     Active Substance: VENLAFAXINE HYDROCHLORIDE
     Indication: DEPRESSION
     Dosage: UNK
     Dates: start: 200701
  2. IBUPROFEN. [Concomitant]
     Active Substance: IBUPROFEN
  3. MIRENA [Suspect]
     Active Substance: LEVONORGESTREL
     Indication: CONTRACEPTION
     Dosage: 20 MCG/24HR, CONT
     Route: 015
     Dates: start: 20081104, end: 20120329
  4. CYTOTEC [Concomitant]
     Active Substance: MISOPROSTOL
  5. PERCOCET [Concomitant]
     Active Substance: ACETAMINOPHEN\OXYCODONE HYDROCHLORIDE

REACTIONS (14)
  - Internal injury [None]
  - Uterine perforation [None]
  - Emotional distress [None]
  - Fear [None]
  - Abdominal pain [None]
  - Injury [None]
  - Device difficult to use [None]
  - Complication of device removal [None]
  - Genital haemorrhage [None]
  - Medical device discomfort [None]
  - Depression [None]
  - Pelvic pain [None]
  - Device breakage [None]
  - Anxiety [None]

NARRATIVE: CASE EVENT DATE: 200811
